FAERS Safety Report 24053998 (Version 1)
Quarter: 2024Q3

REPORT INFORMATION
  Report Type: Spontaneous
  Country: US (occurrence: US)
  Receive Date: 20240705
  Receipt Date: 20240705
  Transmission Date: 20241017
  Serious: No
  Sender: SANOFI AVENTIS
  Company Number: US-SA-SAC20240624000588

PATIENT
  Age: 1 Year
  Sex: Male

DRUGS (2)
  1. ALPROLIX [Suspect]
     Active Substance: EFTRENONACOG ALFA
     Indication: Factor IX deficiency
     Dosage: UNK
     Route: 042
     Dates: start: 20240509
  2. ALPROLIX [Suspect]
     Active Substance: EFTRENONACOG ALFA
     Indication: Factor IX deficiency
     Dosage: UNK
     Route: 042
     Dates: start: 20240509

REACTIONS (1)
  - Coagulation factor IX level decreased [Not Recovered/Not Resolved]

NARRATIVE: CASE EVENT DATE: 20240101
